FAERS Safety Report 20850619 (Version 1)
Quarter: 2022Q2

REPORT INFORMATION
  Report Type: Spontaneous
  Country: US (occurrence: US)
  Receive Date: 20220519
  Receipt Date: 20220519
  Transmission Date: 20220721
  Serious: No
  Sender: FDA-Public Use
  Company Number: US-PFIZER INC-202200702505

PATIENT
  Age: 60 Year
  Sex: Female
  Weight: 74.84 kg

DRUGS (2)
  1. IBRANCE [Suspect]
     Active Substance: PALBOCICLIB
     Indication: Breast cancer metastatic
     Dosage: 100 MG, CYCLIC (DAILY 3 WEEKS ON, ONE WEEK OFF)
  2. IBRANCE [Suspect]
     Active Substance: PALBOCICLIB
     Indication: Breast cancer female

REACTIONS (3)
  - COVID-19 [Unknown]
  - White blood cell count decreased [Unknown]
  - Immune system disorder [Unknown]

NARRATIVE: CASE EVENT DATE: 20220509
